FAERS Safety Report 9524892 (Version 2)
Quarter: 2013Q4

REPORT INFORMATION
  Report Type: Spontaneous
  Country: ID (occurrence: ID)
  Receive Date: 20130916
  Receipt Date: 20131022
  Transmission Date: 20140711
  Serious: Yes (Death, Other)
  Sender: FDA-Public Use
  Company Number: ID-ASTELLAS-2013JP009223

PATIENT
  Age: 20 Year
  Sex: Male

DRUGS (8)
  1. MYCAMINE [Suspect]
     Dosage: 100 MG, UNKNOWN/D
     Route: 042
     Dates: start: 20130830, end: 20130906
  2. MEROPENEM [Concomitant]
     Dosage: UNK
     Route: 065
  3. NARFOZ [Concomitant]
     Dosage: UNK
     Route: 065
  4. KALMETASON [Concomitant]
     Dosage: UNK
     Route: 065
  5. MONOPAGEN [Concomitant]
     Dosage: UNK
     Route: 065
  6. DUMIN [Concomitant]
     Dosage: UNK
     Route: 065
  7. POLYSILANE                         /00159501/ [Concomitant]
     Dosage: UNK
     Route: 065
  8. LACTULAX [Concomitant]
     Dosage: UNK
     Route: 065

REACTIONS (2)
  - Death [Fatal]
  - Deafness [Unknown]
